FAERS Safety Report 5779378-2 (Version None)
Quarter: 2008Q2

REPORT INFORMATION
  Report Type: 
  Country: None (occurrence: None)
  Receive Date: 20080619
  Receipt Date: 20080609
  Transmission Date: 20081010
  Serious: Yes (Hospitalization, Disabling)
  Sender: FDA-Public Use
  Company Number: FR-AMGEN-UK285869

PATIENT
  Age: 59 Year
  Sex: Female
  Weight: 59 kg

DRUGS (6)
  1. VECTIBIX [Suspect]
     Indication: COLORECTAL CANCER
     Route: 042
     Dates: start: 20080429, end: 20080523
  2. TRIMEBUTINE [Concomitant]
  3. DURAGESIC-100 [Concomitant]
  4. ACTISKENAN [Concomitant]
  5. FORLAX [Concomitant]
  6. ARIXTRA [Concomitant]

REACTIONS (4)
  - APHASIA [None]
  - CEREBELLAR ATAXIA [None]
  - CONFUSIONAL STATE [None]
  - GRAND MAL CONVULSION [None]
